FAERS Safety Report 7921590-8 (Version None)
Quarter: 2011Q4

REPORT INFORMATION
  Report Type: 
  Country: None (occurrence: None)
  Receive Date: 20111117
  Receipt Date: 20111103
  Transmission Date: 20120403
  Serious: Yes (Other)
  Sender: FDA-Public Use
  Company Number: US-ELI_LILLY_AND_COMPANY-US201111002766

PATIENT
  Sex: Male

DRUGS (5)
  1. EFFIENT [Suspect]
     Indication: STENT PLACEMENT
     Dosage: 10 MG, QD
     Dates: start: 20110217, end: 20110301
  2. ISOSORBIDE DINITRATE [Concomitant]
     Dosage: 30 MG, QD
  3. METOPROLOL TARTRATE [Concomitant]
     Dosage: 50 MG, TID
  4. PRAVASTATIN [Concomitant]
     Dosage: 10 MG, QD
  5. ASPIRIN [Concomitant]
     Dosage: 81 MG, UNK

REACTIONS (2)
  - SKIN DISCOLOURATION [None]
  - STENT PLACEMENT [None]
